FAERS Safety Report 5800149-2 (Version None)
Quarter: 2008Q2

REPORT INFORMATION
  Report Type: 
  Country: None (occurrence: None)
  Receive Date: 20080626
  Receipt Date: 20080107
  Transmission Date: 20081010
  Serious: Yes (Disabling)
  Sender: FDA-Public Use
  Company Number: APP200800008

PATIENT
  Age: 47 Year
  Sex: Female

DRUGS (1)
  1. SENSORCAINE-MPF SPINAL (BUPIVACAINE HYDROCHLORIDE) [Suspect]
     Indication: ANAESTHESIA
     Dosage: 10 MG, ONCE
     Dates: start: 20051122, end: 20051122

REACTIONS (1)
  - MUSCULAR WEAKNESS [None]
